FAERS Safety Report 13839152 (Version 1)
Quarter: 2017Q3

REPORT INFORMATION
  Report Type: Spontaneous
  Country: US (occurrence: US)
  Receive Date: 20170807
  Receipt Date: 20170807
  Transmission Date: 20171127
  Serious: Yes (Hospitalization, Other)
  Sender: FDA-Public Use
  Company Number: US-009507513-1708USA001562

PATIENT
  Age: 69 Year
  Sex: Male
  Weight: 105 kg

DRUGS (1)
  1. PRINIVIL [Suspect]
     Active Substance: LISINOPRIL
     Indication: HYPERTENSION
     Dosage: 20 MG ONCE PER DAY
     Route: 048
     Dates: end: 20170505

REACTIONS (6)
  - Hypophagia [Unknown]
  - Diarrhoea [Unknown]
  - Hyperkalaemia [Recovered/Resolved]
  - Renal impairment [Unknown]
  - Osteoarthritis [Recovering/Resolving]
  - White blood cell count increased [Recovered/Resolved]

NARRATIVE: CASE EVENT DATE: 20170503
